FAERS Safety Report 4616765-X (Version None)
Quarter: 2005Q2

REPORT INFORMATION
  Report Type: 
  Country: None (occurrence: None)
  Receive Date: 20050311
  Receipt Date: 20041220
  Transmission Date: 20051028
  Serious: Yes (Other)
  Sender: FDA-Public Use
  Company Number: 2004-00955

PATIENT
  Age: 62 Year
  Sex: Male
  Weight: 81.6 kg

DRUGS (1)
  1. VELCADE [Suspect]
     Indication: NON-HODGKIN'S LYMPHOMA STAGE IV
     Dates: start: 20041001

REACTIONS (1)
  - ATRIAL FIBRILLATION [None]
